FAERS Safety Report 13925889 (Version 1)
Quarter: 2017Q3

REPORT INFORMATION
  Report Type: Report from Study
  Country: US (occurrence: US)
  Receive Date: 20170831
  Receipt Date: 20170831
  Transmission Date: 20171127
  Serious: Yes (Other)
  Sender: FDA-Public Use
  Company Number: US-JNJFOC-20170828731

PATIENT
  Age: 80 Year
  Sex: Female

DRUGS (1)
  1. IMBRUVICA [Suspect]
     Active Substance: IBRUTINIB
     Indication: BLOOD DISORDER
     Route: 048
     Dates: start: 20161123

REACTIONS (1)
  - Deafness [Not Recovered/Not Resolved]

NARRATIVE: CASE EVENT DATE: 20170622
